FAERS Safety Report 23800325 (Version 1)
Quarter: 2024Q2

REPORT INFORMATION
  Report Type: Spontaneous
  Country: CA (occurrence: CA)
  Receive Date: 20240430
  Receipt Date: 20240430
  Transmission Date: 20240716
  Serious: Yes (Other)
  Sender: FDA-Public Use
  Company Number: CA-JNJFOC-20240468577

PATIENT
  Age: 18 Year
  Sex: Female
  Weight: 50 kg

DRUGS (3)
  1. TYLENOL [Suspect]
     Active Substance: ACETAMINOPHEN
     Indication: Product used for unknown indication
     Dosage: AS REQUIRED
     Route: 065
  2. MORPHINE [Suspect]
     Active Substance: MORPHINE
     Indication: Product used for unknown indication
     Dosage: AS REQUIRED
     Route: 065
  3. RENFLEXIS [Suspect]
     Active Substance: INFLIXIMAB-ABDA
     Indication: Crohn^s disease
     Route: 042

REACTIONS (3)
  - Constipation [Not Recovered/Not Resolved]
  - Pancreatic enzymes increased [Not Recovered/Not Resolved]
  - Product use issue [Not Recovered/Not Resolved]
